FAERS Safety Report 6673931 (Version 5)
Quarter: 2018Q1

REPORT INFORMATION
  Report Type: Spontaneous
  Country: US (occurrence: US)
  Receive Date: 20080620
  Receipt Date: 20180307
  Transmission Date: 20180509
  Serious: Yes (Hospitalization, Disabling, Other)
  Sender: FDA-Public Use
  Company Number: US-ELI_LILLY_AND_COMPANY-US200806002553

PATIENT
  Age: 48 Year
  Sex: Female

DRUGS (29)
  1. HUMULIN N [Suspect]
     Active Substance: INSULIN HUMAN
     Indication: TYPE 1 DIABETES MELLITUS
     Dosage: UNK UNK, UNKNOWN
     Route: 065
     Dates: start: 1996
  2. PLAVIX [Concomitant]
     Active Substance: CLOPIDOGREL BISULFATE
     Indication: PRODUCT USED FOR UNKNOWN INDICATION
     Dosage: 75 MG, DAILY (1/D)
  3. ASPIRIN                            /00002701/ [Concomitant]
     Active Substance: ASPIRIN
     Indication: PRODUCT USED FOR UNKNOWN INDICATION
     Dosage: 81 MG, DAILY (1/D)
  4. ZOLOFT [Concomitant]
     Active Substance: SERTRALINE HYDROCHLORIDE
     Indication: PRODUCT USED FOR UNKNOWN INDICATION
     Dosage: 50 MG, EACH EVENING
  5. FISH OIL [Concomitant]
     Active Substance: FISH OIL
     Indication: PRODUCT USED FOR UNKNOWN INDICATION
     Dosage: 1200 MG, 2/D
  6. HUMALOG [Suspect]
     Active Substance: INSULIN LISPRO
     Indication: TYPE 2 DIABETES MELLITUS
  7. VERAPAMIL [Concomitant]
     Active Substance: VERAPAMIL HYDROCHLORIDE
     Indication: ANGINA PECTORIS
     Dosage: 120 MG, TID
  8. HUMULIN R [Suspect]
     Active Substance: INSULIN HUMAN
     Dosage: 25 U, TID
     Route: 058
  9. RANEXA [Concomitant]
     Active Substance: RANOLAZINE
     Indication: CARDIAC DISORDER
     Dosage: 500 MG, 2/D
  10. TOUJEO [Concomitant]
     Active Substance: INSULIN GLARGINE
     Indication: TYPE 1 DIABETES MELLITUS
  11. ZETIA [Concomitant]
     Active Substance: EZETIMIBE
     Indication: CARDIAC DISORDER
  12. CLOPIDOGREL [Concomitant]
     Active Substance: CLOPIDOGREL BISULFATE
     Indication: CARDIAC DISORDER
  13. HUMALOG [Suspect]
     Active Substance: INSULIN LISPRO
     Indication: TYPE 2 DIABETES MELLITUS
  14. HUMALOG [Suspect]
     Active Substance: INSULIN LISPRO
     Indication: TYPE 1 DIABETES MELLITUS
     Dosage: UNK UNK, UNKNOWN
     Route: 058
  15. HUMULIN N [Suspect]
     Active Substance: INSULIN HUMAN
     Indication: TYPE 2 DIABETES MELLITUS
  16. HUMULIN R [Suspect]
     Active Substance: INSULIN HUMAN
     Dosage: 25 U, TID
     Route: 058
  17. LANTUS [Concomitant]
     Active Substance: INSULIN GLARGINE
     Indication: DIABETES MELLITUS
     Dosage: 30 U, EACH EVENING
  18. HUMALOG [Suspect]
     Active Substance: INSULIN LISPRO
     Indication: TYPE 1 DIABETES MELLITUS
     Dosage: 5 U, AS NEEDED
     Route: 065
     Dates: start: 20080603
  19. HUMULIN R [Suspect]
     Active Substance: INSULIN HUMAN
     Indication: TYPE 1 DIABETES MELLITUS
     Dosage: UNK UNK, UNKNOWN
     Route: 058
     Dates: start: 1996
  20. ZOFRAN [Concomitant]
     Active Substance: ONDANSETRON HYDROCHLORIDE
     Indication: PRODUCT USED FOR UNKNOWN INDICATION
     Dosage: 4 MG, AS NEEDED
  21. XANAX [Concomitant]
     Active Substance: ALPRAZOLAM
     Indication: ANXIETY
     Dosage: 0.5 MG, EACH EVENING
  22. PRALUENT [Concomitant]
     Active Substance: ALIROCUMAB
     Indication: PRODUCT USED FOR UNKNOWN INDICATION
  23. METOPROLOL. [Concomitant]
     Active Substance: METOPROLOL
     Indication: CARDIAC DISORDER
  24. HUMULIN R [Suspect]
     Active Substance: INSULIN HUMAN
     Indication: TYPE 2 DIABETES MELLITUS
     Dosage: UNK UNK, UNKNOWN
     Route: 058
  25. TOPROL XL [Concomitant]
     Active Substance: METOPROLOL SUCCINATE
     Indication: PRODUCT USED FOR UNKNOWN INDICATION
     Dosage: 12.5 MG, DAILY (1/D)
  26. CRESTOR [Concomitant]
     Active Substance: ROSUVASTATIN CALCIUM
     Indication: PRODUCT USED FOR UNKNOWN INDICATION
     Dosage: 5 MG, QOD
  27. PEPCID [Concomitant]
     Active Substance: FAMOTIDINE
     Indication: PRODUCT USED FOR UNKNOWN INDICATION
     Dosage: 20 MG, 2/D
  28. REPATHA [Concomitant]
     Active Substance: EVOLOCUMAB
     Indication: BLOOD CHOLESTEROL INCREASED
  29. DEXILANT [Concomitant]
     Active Substance: DEXLANSOPRAZOLE
     Indication: GASTRIC DISORDER

REACTIONS (26)
  - Myocardial infarction [Recovered/Resolved]
  - Tenderness [Unknown]
  - Femoral artery dissection [Unknown]
  - Chest pain [Recovered/Resolved]
  - Hyperhidrosis [Recovering/Resolving]
  - Dyspepsia [Unknown]
  - Palpitations [Recovered/Resolved]
  - Angina pectoris [Not Recovered/Not Resolved]
  - Abdominal pain upper [Recovering/Resolving]
  - Dizziness [Recovering/Resolving]
  - Right ventricular failure [Unknown]
  - Polyp [Unknown]
  - Femoral bruit [Unknown]
  - Glycosylated haemoglobin increased [Unknown]
  - Drug ineffective [Recovered/Resolved]
  - Dyspnoea [Recovered/Resolved]
  - Cardiac disorder [Not Recovered/Not Resolved]
  - Vascular occlusion [Not Recovered/Not Resolved]
  - Blood glucose increased [Not Recovered/Not Resolved]
  - Large intestine polyp [Unknown]
  - Nausea [Unknown]
  - Blood glucose abnormal [Recovered/Resolved]
  - Myocardial infarction [Not Recovered/Not Resolved]
  - Anxiety [Recovering/Resolving]
  - Hypotension [Unknown]
  - Abdominal pain [Unknown]

NARRATIVE: CASE EVENT DATE: 1993
